FAERS Safety Report 6573275-0 (Version None)
Quarter: 2010Q1

REPORT INFORMATION
  Report Type: 
  Country: None (occurrence: None)
  Receive Date: 20100208
  Receipt Date: 20100128
  Transmission Date: 20100710
  Serious: Yes (Other)
  Sender: FDA-Public Use
  Company Number: GB-JNJFOC-20080704756

PATIENT
  Age: 57 Year
  Sex: Female
  Weight: 56 kg

DRUGS (9)
  1. REMICADE [Suspect]
     Indication: RHEUMATOID ARTHRITIS
     Dosage: DOSE ^156^
     Route: 042
  2. METHOTREXATE [Concomitant]
  3. BECOTIDE [Concomitant]
  4. IBRUPROFEN [Concomitant]
  5. FERROUS SULFATE TAB [Concomitant]
  6. FOLIC ACID [Concomitant]
  7. FRUSEMIDE [Concomitant]
  8. REMEDEINE [Concomitant]
  9. VENTOLIN [Concomitant]

REACTIONS (1)
  - BRONCHIAL CARCINOMA [None]
